FAERS Safety Report 15757143 (Version 4)
Quarter: 2019Q2

REPORT INFORMATION
  Report Type: Spontaneous
  Country: JP (occurrence: JP)
  Receive Date: 20181224
  Receipt Date: 20190426
  Transmission Date: 20190711
  Serious: Yes (Death, Life-Threatening, Hospitalization)
  Sender: FDA-Public Use
  Company Number: JP-ASTRAZENECA-2018SF32622

PATIENT
  Age: 30143 Day
  Sex: Male
  Weight: 56 kg

DRUGS (1)
  1. IMFINZI [Suspect]
     Active Substance: DURVALUMAB
     Indication: NON-SMALL CELL LUNG CANCER
     Route: 042
     Dates: start: 20180927, end: 20180927

REACTIONS (2)
  - Interstitial lung disease [Recovering/Resolving]
  - Pneumonia bacterial [Fatal]

NARRATIVE: CASE EVENT DATE: 20181008
